FAERS Safety Report 10529962 (Version 1)
Quarter: 2014Q4

REPORT INFORMATION
  Report Type: Spontaneous
  Country: FR (occurrence: FR)
  Receive Date: 20141021
  Receipt Date: 20141021
  Transmission Date: 20150528
  Serious: Yes (Hospitalization)
  Sender: FDA-Public Use
  Company Number: FR-ASTRAZENECA-2014SE78137

PATIENT
  Age: 88 Year
  Sex: Female

DRUGS (5)
  1. TAHOR [Concomitant]
     Active Substance: ATORVASTATIN CALCIUM
  2. KALEORID [Concomitant]
     Active Substance: POTASSIUM CHLORIDE
  3. ZOMIG [Suspect]
     Active Substance: ZOLMITRIPTAN
     Route: 048
  4. PRADAXA [Suspect]
     Active Substance: DABIGATRAN ETEXILATE MESYLATE
     Route: 048
     Dates: start: 201401, end: 20140918
  5. BISOPROLOL [Concomitant]
     Active Substance: BISOPROLOL

REACTIONS (5)
  - Cerebral infarction [Unknown]
  - Retinal artery occlusion [Unknown]
  - Monoplegia [Unknown]
  - Ischaemic stroke [Recovered/Resolved with Sequelae]
  - VIIth nerve paralysis [Unknown]

NARRATIVE: CASE EVENT DATE: 20140918
